FAERS Safety Report 9700451 (Version 1)
Quarter: 2013Q4

REPORT INFORMATION
  Report Type: Spontaneous
  Country: US (occurrence: None)
  Receive Date: 20131120
  Receipt Date: 20131120
  Transmission Date: 20140711
  Serious: Yes (Other)
  Sender: FDA-Public Use
  Company Number: None

PATIENT
  Age: 58 Year
  Sex: Male

DRUGS (1)
  1. QUETIAPINE [Suspect]
     Indication: SCHIZOAFFECTIVE DISORDER
     Dosage: QUETIAPINE 100 MG/100 MG/400 MG  QAM/QPM/ QHS   PO
     Route: 048
     Dates: start: 20130905, end: 20130917

REACTIONS (3)
  - Rash pruritic [None]
  - Drug eruption [None]
  - Rash morbilliform [None]
